APPROVED DRUG PRODUCT: GILENYA
Active Ingredient: FINGOLIMOD HYDROCHLORIDE
Strength: EQ 0.25MG BASE
Dosage Form/Route: CAPSULE;ORAL
Application: N022527 | Product #002
Applicant: NOVARTIS PHARMACEUTICALS CORP
Approved: May 11, 2018 | RLD: Yes | RS: No | Type: RX

PATENTS:
Patent 9592208 | Expires: Mar 30, 2032
Patent 9592208*PED | Expires: Sep 30, 2032